FAERS Safety Report 7994593-5 (Version None)
Quarter: 2011Q4

REPORT INFORMATION
  Report Type: 
  Country: None (occurrence: None)
  Receive Date: 20111220
  Receipt Date: 20111205
  Transmission Date: 20120403
  Serious: Yes (Other)
  Sender: FDA-Public Use
  Company Number: BR-BAYER-2011-115805

PATIENT
  Sex: Female
  Weight: 56 kg

DRUGS (2)
  1. YAZ (24) [Suspect]
     Indication: ORAL CONTRACEPTION
     Dosage: 1 DF, QD
     Route: 048
     Dates: start: 20060101
  2. YASMIN [Suspect]
     Dosage: UNK
     Route: 048
     Dates: start: 20030101, end: 20060101

REACTIONS (4)
  - METRORRHAGIA [None]
  - OPEN WOUND [None]
  - DERMATITIS [None]
  - AMENORRHOEA [None]
